FAERS Safety Report 8541766-9 (Version None)
Quarter: 2012Q3

REPORT INFORMATION
  Report Type: 
  Country: None (occurrence: None)
  Receive Date: 20120726
  Receipt Date: 20110902
  Transmission Date: 20120928
  Serious: No
  Sender: FDA-Public Use
  Company Number: US-ASTRAZENECA-2011SE52916

PATIENT
  Age: 635 Month
  Sex: Female
  Weight: 93.4 kg

DRUGS (1)
  1. SEROQUEL XR [Suspect]
     Indication: DEPRESSION
     Route: 048
     Dates: start: 20110201

REACTIONS (2)
  - ARTHRITIS [None]
  - ANKYLOSING SPONDYLITIS [None]
